FAERS Safety Report 11841820 (Version 5)
Quarter: 2017Q1

REPORT INFORMATION
  Report Type: Report from Study
  Country: US (occurrence: US)
  Receive Date: 20151216
  Receipt Date: 20170303
  Transmission Date: 20170428
  Serious: Yes (Other)
  Sender: FDA-Public Use
  Company Number: US-BRISTOL-MYERS SQUIBB COMPANY-BMS-2015-086017

PATIENT
  Sex: Female
  Weight: 88.44 kg

DRUGS (1)
  1. NIVOLUMAB [Suspect]
     Active Substance: NIVOLUMAB
     Indication: NON-SMALL CELL LUNG CANCER
     Dosage: 240 MG, UNK
     Route: 042
     Dates: start: 201509

REACTIONS (6)
  - Gastrointestinal disorder [Recovered/Resolved]
  - Chest discomfort [Unknown]
  - Aphonia [Unknown]
  - Cough [Unknown]
  - Malignant neoplasm progression [Unknown]
  - Respiratory disorder [Unknown]
